FAERS Safety Report 16788551 (Version 1)
Quarter: 2019Q3

REPORT INFORMATION
  Report Type: Spontaneous
  Country: JP (occurrence: JP)
  Receive Date: 20190910
  Receipt Date: 20190910
  Transmission Date: 20191005
  Serious: Yes (Other)
  Sender: FDA-Public Use
  Company Number: JP-SA-2019SA247075

PATIENT

DRUGS (1)
  1. AMARYL [Suspect]
     Active Substance: GLIMEPIRIDE
     Indication: PRODUCT USED FOR UNKNOWN INDICATION
     Dosage: UNK UNK, BID IN THE MORNING AND AT NIGHT
     Route: 048

REACTIONS (7)
  - Renal impairment [Unknown]
  - Vision blurred [Unknown]
  - Decreased activity [Unknown]
  - Insomnia [Unknown]
  - Hypoglycaemia [Unknown]
  - Tremor [Unknown]
  - Diplopia [Unknown]
